FAERS Safety Report 24680511 (Version 1)
Quarter: 2024Q4

REPORT INFORMATION
  Report Type: Spontaneous
  Country: US (occurrence: US)
  Receive Date: 20241129
  Receipt Date: 20241129
  Transmission Date: 20250114
  Serious: Yes (Other)
  Sender: PFIZER
  Company Number: US-PFIZER INC-202400307532

PATIENT
  Sex: Female

DRUGS (1)
  1. DOFETILIDE [Suspect]
     Active Substance: DOFETILIDE
     Indication: Atrial fibrillation
     Dosage: TWO DOSES, ONE IS 1.5 AND ONE IS 260 TWICE A DAY, EVERYDAY

REACTIONS (2)
  - Cardiac pacemaker insertion [Unknown]
  - Off label use [Unknown]

NARRATIVE: CASE EVENT DATE: 20241101
